FAERS Safety Report 25220312 (Version 1)
Quarter: 2025Q2

REPORT INFORMATION
  Report Type: Spontaneous
  Country: US (occurrence: US)
  Receive Date: 20250421
  Receipt Date: 20250421
  Transmission Date: 20250717
  Serious: Yes (Hospitalization, Other)
  Sender: IBSA INSTITUT BIOCHIMIQUE
  Company Number: US-IBSA PHARMA INC.-2024IBS000515

PATIENT

DRUGS (6)
  1. LEVOTHYROXINE SODIUM [Suspect]
     Active Substance: LEVOTHYROXINE SODIUM
     Indication: Product used for unknown indication
     Route: 065
  2. ORGOVYX [Suspect]
     Active Substance: RELUGOLIX
     Indication: Prostate cancer
     Dosage: 360 MILLIGRAM, QD
     Dates: start: 20240417, end: 20240417
  3. ORGOVYX [Suspect]
     Active Substance: RELUGOLIX
     Dosage: 120 MILLIGRAM, QD
     Dates: start: 20240418
  4. ROSUVASTATIN CALCIUM [Suspect]
     Active Substance: ROSUVASTATIN CALCIUM
     Indication: Product used for unknown indication
     Route: 065
  5. ERLEADA [Concomitant]
     Active Substance: APALUTAMIDE
     Indication: Prostate cancer
     Route: 065
     Dates: start: 20240418
  6. NUBEQA [Concomitant]
     Active Substance: DAROLUTAMIDE
     Indication: Prostate cancer
     Route: 065

REACTIONS (13)
  - Sepsis [None]
  - Cough [Unknown]
  - Blindness transient [Unknown]
  - Somnolence [Unknown]
  - Memory impairment [Unknown]
  - Gait disturbance [Unknown]
  - Hypoacusis [Unknown]
  - Illness [Unknown]
  - Haemorrhage [Unknown]
  - Asthenia [Unknown]
  - Back pain [Unknown]
  - Anaemia [Unknown]
  - Rash [Unknown]
